FAERS Safety Report 6738656-0 (Version None)
Quarter: 2010Q2

REPORT INFORMATION
  Report Type: 
  Country: None (occurrence: None)
  Receive Date: 20100524
  Receipt Date: 20100510
  Transmission Date: 20101027
  Serious: Yes (Hospitalization)
  Sender: FDA-Public Use
  Company Number: US-MYLANLABS-2010S1008113

PATIENT
  Age: 49 Year
  Sex: Female

DRUGS (6)
  1. AZITHROMYCIN [Suspect]
     Indication: BRONCHITIS
     Route: 065
  2. RED YEAST RICE [Interacting]
     Route: 065
  3. UBIDECARENONE [Concomitant]
     Route: 065
  4. BROMELAINS [Concomitant]
     Route: 065
  5. GINGER [Concomitant]
     Route: 065
  6. VITAMIN B COMPLEX CAP [Concomitant]
     Route: 065

REACTIONS (2)
  - DRUG INTERACTION [None]
  - RHABDOMYOLYSIS [None]
